FAERS Safety Report 12257856 (Version 1)
Quarter: 2016Q2

REPORT INFORMATION
  Report Type: Spontaneous
  Country: TR (occurrence: TR)
  Receive Date: 20160412
  Receipt Date: 20160412
  Transmission Date: 20160815
  Serious: Yes (Hospitalization, Other)
  Sender: FDA-Public Use
  Company Number: TR-HARRIS PHARMACEUTICAL-2016HAR00006

PATIENT
  Age: 41 Year
  Sex: Female

DRUGS (1)
  1. TERBINAFINE. [Suspect]
     Active Substance: TERBINAFINE
     Indication: ONYCHOMYCOSIS
     Dosage: UNK
     Route: 048
     Dates: start: 2011, end: 201104

REACTIONS (8)
  - Aplastic anaemia [Recovered/Resolved]
  - Varicella zoster virus infection [Recovered/Resolved]
  - Pancytopenia [Recovered/Resolved]
  - Aspergillus infection [Recovered/Resolved]
  - Anal abscess [Recovered/Resolved]
  - Device related infection [Recovered/Resolved]
  - Vaginal haemorrhage [Recovered/Resolved]
  - Hepatitis [Recovered/Resolved]

NARRATIVE: CASE EVENT DATE: 2011
